FAERS Safety Report 5742712-3 (Version None)
Quarter: 2008Q2

REPORT INFORMATION
  Report Type: 
  Country: None (occurrence: None)
  Receive Date: 20080519
  Receipt Date: 20080515
  Transmission Date: 20081010
  Serious: Yes (Death)
  Sender: FDA-Public Use
  Company Number: B0516439A

PATIENT
  Sex: Female

DRUGS (7)
  1. LEUKERAN [Suspect]
     Indication: NON-HODGKIN'S LYMPHOMA
     Dosage: 6MG PER DAY
     Route: 065
     Dates: start: 20080113
  2. COUGH MEDICATIONS [Concomitant]
  3. LIVER SUPPORTING AGENT [Concomitant]
  4. FAT FREE [Concomitant]
  5. RADIOTHERAPY [Concomitant]
  6. PREDNISOLONE [Concomitant]
     Indication: NON-HODGKIN'S LYMPHOMA
     Dosage: 30MG PER DAY
     Route: 065
     Dates: start: 20080113
  7. HERBAL REMEDIES [Concomitant]
     Route: 065

REACTIONS (9)
  - ANOREXIA [None]
  - ASTHENIA [None]
  - CONDITION AGGRAVATED [None]
  - CONFUSIONAL STATE [None]
  - CONTRAINDICATION TO MEDICAL TREATMENT [None]
  - COUGH [None]
  - DYSPHAGIA [None]
  - LIVER DISORDER [None]
  - RESPIRATORY DISTRESS [None]
